FAERS Safety Report 5853863-7 (Version None)
Quarter: 2008Q3

REPORT INFORMATION
  Report Type: 
  Country: None (occurrence: None)
  Receive Date: 20080822
  Receipt Date: 20080813
  Transmission Date: 20090109
  Serious: Yes (Congenital Anomaly)
  Sender: FDA-Public Use
  Company Number: A0680674A

PATIENT
  Sex: Male
  Weight: 3.5 kg

DRUGS (4)
  1. PAXIL [Suspect]
     Indication: DEPRESSION
     Dates: start: 20020201, end: 20030901
  2. PAROXETINE HCL [Suspect]
     Dosage: 30MG PER DAY
     Dates: start: 20030601, end: 20070101
  3. VITAMIN TAB [Concomitant]
  4. ZITHROMAX [Concomitant]

REACTIONS (8)
  - CARDIAC ARREST [None]
  - DEVELOPMENTAL DELAY [None]
  - DRUG EXPOSURE DURING PREGNANCY [None]
  - FAILURE TO THRIVE [None]
  - MULTIPLE CONGENITAL ABNORMALITIES [None]
  - RESPIRATORY DISTRESS [None]
  - SPEECH DISORDER DEVELOPMENTAL [None]
  - TRANSIENT TACHYPNOEA OF THE NEWBORN [None]
